APPROVED DRUG PRODUCT: MILRINONE LACTATE IN DEXTROSE 5% IN PLASTIC CONTAINER
Active Ingredient: MILRINONE LACTATE
Strength: EQ 40MG BASE/200ML (EQ 0.2MG BASE/ML)
Dosage Form/Route: INJECTABLE;INJECTION
Application: A075885 | Product #002
Applicant: HOSPIRA INC
Approved: May 28, 2002 | RLD: No | RS: No | Type: DISCN